FAERS Safety Report 5754412-4 (Version None)
Quarter: 2008Q2

REPORT INFORMATION
  Report Type: 
  Country: None (occurrence: None)
  Receive Date: 20080530
  Receipt Date: 20080527
  Transmission Date: 20081010
  Serious: Yes (Other)
  Sender: FDA-Public Use
  Company Number: GR-BOEHRINGER INGELHEIM GMBH, GERMANY-2008-BP-08246RO

PATIENT
  Age: 64 Year
  Sex: Female

DRUGS (4)
  1. CALCIUM CARBONATE [Suspect]
     Indication: OSTEOPENIA
  2. LEVOTHYROXINE SODIUM [Suspect]
     Indication: HYPOTHYROIDISM
  3. LEVOTHYROXINE SODIUM [Suspect]
  4. LEVOTHYROXINE SODIUM [Suspect]

REACTIONS (2)
  - DRUG INTERACTION [None]
  - HYPOTHYROIDISM [None]
